FAERS Safety Report 19122227 (Version 1)
Quarter: 2021Q2

REPORT INFORMATION
  Report Type: Report from Study
  Country: GB (occurrence: GB)
  Receive Date: 20210412
  Receipt Date: 20210412
  Transmission Date: 20210717
  Serious: Yes (Other)
  Sender: FDA-Public Use
  Company Number: GB-PFIZER INC-2021386179

PATIENT

DRUGS (2)
  1. RIFABUTIN. [Suspect]
     Active Substance: RIFABUTIN
     Indication: MYCOBACTERIUM AVIUM COMPLEX INFECTION
     Dosage: UNK
  2. RIFABUTIN. [Suspect]
     Active Substance: RIFABUTIN
     Indication: PROPHYLAXIS

REACTIONS (2)
  - Clostridium difficile colitis [Unknown]
  - Pseudomembranous colitis [Unknown]
